FAERS Safety Report 6414470-0 (Version None)
Quarter: 2009Q4

REPORT INFORMATION
  Report Type: 
  Country: None (occurrence: None)
  Receive Date: 20091026
  Receipt Date: 20091021
  Transmission Date: 20100525
  Serious: Yes (Hospitalization)
  Sender: FDA-Public Use
  Company Number: PHHY2009SE45560

PATIENT

DRUGS (1)
  1. SANDOSTATIN [Suspect]

REACTIONS (2)
  - COMA [None]
  - LOSS OF CONSCIOUSNESS [None]
